FAERS Safety Report 8806790 (Version 1)
Quarter: 2012Q4

REPORT INFORMATION
  Report Type: 
  Country: BR (occurrence: BR)
  Receive Date: 20120925
  Receipt Date: 20120925
  Transmission Date: 20130627
  Serious: Yes (Other)
  Sender: FDA-Public Use
  Company Number: BR-ROCHE-1073048

PATIENT
  Age: 63 Year
  Sex: Female
  Weight: 60.3 kg

DRUGS (11)
  1. HERCEPTIN [Suspect]
     Indication: BREAST CANCER
     Route: 042
     Dates: start: 20120516, end: 20120516
  2. HERCEPTIN [Suspect]
     Route: 065
     Dates: start: 20120613
  3. DEXAMETHASONE [Concomitant]
     Route: 042
     Dates: start: 20120516, end: 20120516
  4. DEXAMETHASONE [Concomitant]
     Route: 042
     Dates: start: 20120613
  5. TAMOXIFEN [Concomitant]
     Indication: BREAST CANCER
     Route: 048
     Dates: start: 20120417
  6. LOSARTAN [Concomitant]
     Indication: HYPERTENSION
     Route: 048
  7. AMILORIDE [Concomitant]
     Indication: HYPERTENSION
     Route: 048
  8. SIMVASTATIN [Concomitant]
     Indication: DYSLIPIDAEMIA
     Route: 048
  9. PURAN T4 [Concomitant]
     Indication: HYPOTHYROIDISM
     Route: 048
  10. HYDROCHLOROTHIAZIDE [Concomitant]
     Route: 065
  11. PARACETAMOL [Concomitant]
     Route: 048

REACTIONS (4)
  - Hypertension [Recovered/Resolved]
  - Tachycardia [Recovered/Resolved]
  - Chest pain [Recovered/Resolved]
  - Tremor [Recovered/Resolved]
